FAERS Safety Report 5193967-8 (Version None)
Quarter: 2006Q4

REPORT INFORMATION
  Report Type: 
  Country: None (occurrence: None)
  Receive Date: 20061222
  Receipt Date: 20061212
  Transmission Date: 20070319
  Serious: Yes (Other)
  Sender: FDA-Public Use
  Company Number: 2006S1011568

PATIENT
  Age: 31 Year
  Sex: Female

DRUGS (4)
  1. LORAZEPAM [Suspect]
     Indication: ANXIETY
     Dosage: PO
     Route: 048
     Dates: start: 20061122, end: 20061211
  2. PAROXETINE HCL [Suspect]
     Dosage: PO
     Route: 048
     Dates: start: 20061006, end: 20061211
  3. TRAZODONE HCL [Suspect]
     Dosage: PO
     Route: 048
     Dates: start: 20061006, end: 20061211
  4. ALCOHOL /00002101/ [Suspect]

REACTIONS (8)
  - ALCOHOL USE [None]
  - AMNESIA [None]
  - ANXIETY [None]
  - CONTUSION [None]
  - LOSS OF CONSCIOUSNESS [None]
  - NAUSEA [None]
  - TACHYCARDIA [None]
  - VOMITING [None]
